FAERS Safety Report 17539538 (Version 2)
Quarter: 2021Q3

REPORT INFORMATION
  Report Type: Spontaneous
  Country: US (occurrence: US)
  Receive Date: 20200313
  Receipt Date: 20210929
  Transmission Date: 20211014
  Serious: No
  Sender: FDA-Public Use
  Company Number: US-PFIZER INC-2020108817

PATIENT
  Age: 72 Year
  Sex: Female

DRUGS (1)
  1. LYRICA [Suspect]
     Active Substance: PREGABALIN
     Indication: LUMBAR RADICULOPATHY
     Dosage: 50 MG, 3X/DAY (1 CAPSULE THREE TIMES A DAY)
     Route: 048

REACTIONS (2)
  - Depression [Unknown]
  - Withdrawal syndrome [Unknown]
